FAERS Safety Report 16423533 (Version 2)
Quarter: 2022Q2

REPORT INFORMATION
  Report Type: Spontaneous
  Country: US (occurrence: US)
  Receive Date: 20190613
  Receipt Date: 20220406
  Transmission Date: 20220721
  Serious: Yes (Life-Threatening, Hospitalization, Other)
  Sender: FDA-Public Use
  Company Number: US-SUN PHARMACEUTICAL INDUSTRIES LTD-2019R1-208139

PATIENT

DRUGS (2)
  1. ACETAMINOPHEN [Suspect]
     Active Substance: ACETAMINOPHEN
     Indication: Suicide attempt
     Route: 064
  2. ASPIRIN [Suspect]
     Active Substance: ASPIRIN
     Indication: Suicide attempt
     Route: 064

REACTIONS (9)
  - Foetal acidosis [Recovered/Resolved]
  - Foetal heart rate deceleration abnormality [Unknown]
  - Foetal exposure during pregnancy [Unknown]
  - Tachycardia foetal [Unknown]
  - Analgesic drug level increased [Unknown]
  - Hepatotoxicity [Recovered/Resolved]
  - Premature baby [Unknown]
  - Neonatal respiratory distress [Unknown]
  - Metabolic acidosis [Recovered/Resolved]
